FAERS Safety Report 7056440-8 (Version None)
Quarter: 2010Q4

REPORT INFORMATION
  Report Type: 
  Country: None (occurrence: None)
  Receive Date: 20101021
  Receipt Date: 20101015
  Transmission Date: 20110411
  Serious: Yes (Life-Threatening, Other)
  Sender: FDA-Public Use
  Company Number: DE-ROCHE-731600

PATIENT
  Sex: Female
  Weight: 52 kg

DRUGS (5)
  1. AVASTIN [Suspect]
     Indication: BREAST CANCER
     Route: 065
     Dates: start: 20080901, end: 20100902
  2. BONDRONAT [Concomitant]
  3. ARIMIDEX [Concomitant]
     Indication: BREAST CANCER
     Route: 048
     Dates: start: 20090101
  4. LYRICA [Concomitant]
     Indication: POLYNEUROPATHY
     Dosage: IN THE MORNING AND IN THE EVENING
     Dates: start: 20091001
  5. DELIX [Concomitant]
     Dosage: IN THE MORNING
     Dates: start: 20091001

REACTIONS (4)
  - GLOMERULONEPHRITIS MEMBRANOPROLIFERATIVE [None]
  - HYPERTENSION [None]
  - NEPHROTIC SYNDROME [None]
  - RASH MACULAR [None]
